FAERS Safety Report 8767835 (Version 1)
Quarter: 2012Q4

REPORT INFORMATION
  Report Type: 
  Country: GB (occurrence: GB)
  Receive Date: 20120905
  Receipt Date: 20120905
  Transmission Date: 20130627
  Serious: Yes (Disabling)
  Sender: FDA-Public Use
  Company Number: PHHY2012GB074803

PATIENT
  Age: 24 Year
  Sex: Female
  Weight: 82.55 kg

DRUGS (1)
  1. VENLAFAXINE HYDROCHLORIDE [Suspect]
     Indication: POSTPARTUM DEPRESSION
     Dosage: 150 mg, UNK
     Route: 048
     Dates: start: 20090823, end: 20120820

REACTIONS (10)
  - Psychotic behaviour [Unknown]
  - Screaming [Unknown]
  - Dizziness [Not Recovered/Not Resolved]
  - Abasia [Unknown]
  - Headache [Not Recovered/Not Resolved]
  - Abnormal weight gain [Recovering/Resolving]
  - Depression [Unknown]
  - Drug dependence [Recovered/Resolved with Sequelae]
  - Withdrawal syndrome [Unknown]
  - Wrong technique in drug usage process [Unknown]
